FAERS Safety Report 25787441 (Version 5)
Quarter: 2025Q4

REPORT INFORMATION
  Report Type: Spontaneous
  Country: US (occurrence: US)
  Receive Date: 20250910
  Receipt Date: 20251223
  Transmission Date: 20260117
  Serious: No
  Sender: BAYER HEALTHCARE PHARMACEUTICALS INC.
  Company Number: US-BAYER-2025A119740

PATIENT
  Age: 35 Year
  Sex: Female
  Weight: 95.25 kg

DRUGS (5)
  1. GADAVIST [Suspect]
     Active Substance: GADOBUTROL
     Indication: Arteriogram carotid
     Dosage: 10 ML, ONCE
     Dates: start: 20250905, end: 20250905
  2. GADAVIST [Suspect]
     Active Substance: GADOBUTROL
     Indication: Takayasu^s arteritis
  3. GADAVIST [Suspect]
     Active Substance: GADOBUTROL
     Indication: Arteriogram
  4. PREDNISONE [Concomitant]
     Active Substance: PREDNISONE
     Dosage: UNK UNK, QD
  5. BUPROPION [Concomitant]
     Active Substance: BUPROPION

REACTIONS (3)
  - Urticaria [Recovered/Resolved]
  - Pruritus [Recovered/Resolved]
  - Headache [Recovered/Resolved]
